FAERS Safety Report 8902432 (Version 1)
Quarter: 2012Q4

REPORT INFORMATION
  Report Type: 
  Country: US (occurrence: US)
  Receive Date: 20121112
  Receipt Date: 20121112
  Transmission Date: 20130627
  Serious: Yes (Other)
  Sender: FDA-Public Use
  Company Number: US-ROCHE-1133882

PATIENT
  Sex: Female

DRUGS (4)
  1. RAPTIVA [Suspect]
     Indication: PSORIASIS
     Route: 065
  2. RAPTIVA [Suspect]
     Indication: PUSTULAR PSORIASIS
  3. METHOTREXATE [Concomitant]
  4. REMICADE [Concomitant]

REACTIONS (3)
  - Psoriasis [Unknown]
  - Systemic lupus erythematosus [Unknown]
  - Skin plaque [Unknown]
